FAERS Safety Report 9985209 (Version 1)
Quarter: 2014Q1

REPORT INFORMATION
  Report Type: Report from Study
  Country: US (occurrence: US)
  Receive Date: 20140307
  Receipt Date: 20140307
  Transmission Date: 20141002
  Serious: No
  Sender: FDA-Public Use
  Company Number: US-ABBVIE-14P-163-1185648-00

PATIENT
  Age: 60 Year
  Sex: Female

DRUGS (14)
  1. HUMIRA [Suspect]
     Indication: RHEUMATOID ARTHRITIS
     Dates: start: 20131011
  2. HUMIRA [Suspect]
     Indication: PSORIASIS
  3. HUMIRA [Suspect]
     Indication: PSORIATIC ARTHROPATHY
  4. METHOTREXATE [Concomitant]
     Indication: RHEUMATOID ARTHRITIS
  5. FOLIC ACID [Concomitant]
     Indication: PRODUCT USED FOR UNKNOWN INDICATION
  6. CLONAZEPAM [Concomitant]
     Indication: ANXIETY
  7. ATORVASTATIN [Concomitant]
     Indication: BLOOD CHOLESTEROL INCREASED
  8. NEXIUM [Concomitant]
     Indication: GASTRIC DISORDER
     Dosage: AT MORNING
  9. RANITIDINE [Concomitant]
     Indication: GASTRIC DISORDER
     Dosage: AT NIGHT
  10. CITALOPRAM [Concomitant]
     Indication: DEPRESSION
     Dosage: AT NIGHT
  11. AMLODIPINE [Concomitant]
     Indication: HYPERTENSION
     Dosage: AT NIGHT
  12. LOSARTAN [Concomitant]
     Indication: HYPERTENSION
     Dosage: AT MORNING
  13. VITAMIN D [Concomitant]
     Indication: PRODUCT USED FOR UNKNOWN INDICATION
  14. VITAMIN B-12 [Concomitant]
     Indication: PRODUCT USED FOR UNKNOWN INDICATION

REACTIONS (1)
  - Injection site pain [Not Recovered/Not Resolved]
